FAERS Safety Report 18918054 (Version 3)
Quarter: 2022Q3

REPORT INFORMATION
  Report Type: Other
  Country: JP (occurrence: JP)
  Receive Date: 20210220
  Receipt Date: 20220706
  Transmission Date: 20221027
  Serious: Yes (Other)
  Sender: FDA-Public Use
  Company Number: JP-CHUGAI-A2021006737ROCHE

PATIENT
  Age: 61 Year
  Sex: Female
  Weight: 40 kg

DRUGS (6)
  1. KADCYLA [Suspect]
     Active Substance: ADO-TRASTUZUMAB EMTANSINE
     Indication: Breast cancer
     Route: 041
  2. METHYLCOBALAMIN [Concomitant]
     Active Substance: METHYLCOBALAMIN
  3. RIBOFLAVIN [Concomitant]
     Active Substance: RIBOFLAVIN
     Dosage: DOSAGE IS UNCERTAIN.
     Route: 065
  4. PYRIDOXAL [Concomitant]
     Active Substance: PYRIDOXAL
  5. CINAL (JAPAN) [Concomitant]
  6. NAUZELIN [Concomitant]
     Active Substance: DOMPERIDONE

REACTIONS (1)
  - Pulmonary toxicity [Recovered/Resolved]

NARRATIVE: CASE EVENT DATE: 20210118
